FAERS Safety Report 7472424-X (Version None)
Quarter: 2011Q2

REPORT INFORMATION
  Report Type: 
  Country: None (occurrence: None)
  Receive Date: 20110511
  Receipt Date: 20110506
  Transmission Date: 20111010
  Serious: Yes (Death)
  Sender: FDA-Public Use
  Company Number: PHHY2011BR38314

PATIENT
  Sex: Female

DRUGS (2)
  1. EXFORGE [Suspect]
     Dosage: 1 DF,320/5 MG
  2. DIOVAN [Suspect]
     Dosage: 320 MG, UNK

REACTIONS (1)
  - DEATH [None]
